FAERS Safety Report 25156156 (Version 6)
Quarter: 2025Q4

REPORT INFORMATION
  Report Type: Spontaneous
  Country: GB (occurrence: GB)
  Receive Date: 20250403
  Receipt Date: 20251224
  Transmission Date: 20260117
  Serious: Yes (Other)
  Sender: SANOFI AVENTIS
  Company Number: EU-PHARMATHEN-20-25-COI-IQVIA-0001205

PATIENT
  Age: 56 Year
  Sex: Female

DRUGS (5)
  1. CLOPIDOGREL BISULFATE [Suspect]
     Active Substance: CLOPIDOGREL BISULFATE
     Indication: Product used for unknown indication
     Dosage: UNK
  2. CLOPIDOGREL BISULFATE [Suspect]
     Active Substance: CLOPIDOGREL BISULFATE
     Dosage: UNK (SECOND DOSE)
  3. HYRIMOZ [Suspect]
     Active Substance: ADALIMUMAB-ADAZ
     Indication: Rheumatoid arthritis
     Dosage: 40 MG, QOW (40 MILLIGRAM(EVERY TWO WEEKS) (SOLUTION)
     Route: 058
     Dates: start: 20230911
  4. HYRIMOZ [Suspect]
     Active Substance: ADALIMUMAB-ADAZ
     Dosage: 80 MG, QW (80 MG, QW (40 MILLIGRAM HYRIMOZ 40 MG)
     Route: 058
     Dates: start: 20230911
  5. HYRIMOZ [Suspect]
     Active Substance: ADALIMUMAB-ADAZ
     Dosage: 120 DF (120 DF, 40.000DF TIW)
     Route: 058
     Dates: start: 20230911

REACTIONS (9)
  - Hypoglycaemia [Unknown]
  - Fatigue [Unknown]
  - Depression [Recovering/Resolving]
  - Gastrooesophageal reflux disease [Not Recovered/Not Resolved]
  - Decreased appetite [Recovered/Resolved]
  - Abdominal pain [Unknown]
  - Constipation [Unknown]
  - Contusion [Unknown]
  - Drug ineffective [Unknown]
